FAERS Safety Report 6733336-X (Version None)
Quarter: 2010Q2

REPORT INFORMATION
  Report Type: 
  Country: None (occurrence: None)
  Receive Date: 20100520
  Receipt Date: 20100512
  Transmission Date: 20101027
  Serious: Yes (Other)
  Sender: FDA-Public Use
  Company Number: AT-PFIZER INC-2010054003

PATIENT
  Age: 78 Year
  Sex: Male
  Weight: 77 kg

DRUGS (5)
  1. REVATIO [Suspect]
     Indication: PULMONARY HYPERTENSION
     Dosage: 20 MG, 3X/DAY
     Route: 048
     Dates: start: 20100201, end: 20100428
  2. FUROSEMID [Concomitant]
     Dosage: UNK
  3. SPIRONOLACTONE [Concomitant]
     Dosage: UNK
  4. INSULIN HUMAN [Concomitant]
     Dosage: UNK
  5. PHENPROCOUMON [Concomitant]
     Dosage: UNK

REACTIONS (2)
  - ANAEMIA [None]
  - LEUKOPENIA [None]
